FAERS Safety Report 7623098-6 (Version None)
Quarter: 2011Q3

REPORT INFORMATION
  Report Type: 
  Country: None (occurrence: None)
  Receive Date: 20110720
  Receipt Date: 20110715
  Transmission Date: 20111222
  Serious: No
  Sender: FDA-Public Use
  Company Number: US-B.I. PHARMACEUTICALS,INC./RIDGEFIELD-2011-BP-17858BP

PATIENT
  Sex: Female

DRUGS (12)
  1. TRAMADOL HCL [Concomitant]
     Indication: PAIN IN EXTREMITY
     Route: 048
     Dates: start: 20101201
  2. LISINOPRIL [Concomitant]
     Indication: HYPERTENSION
     Dosage: 2.5 MG
     Route: 048
     Dates: start: 20070101
  3. WELCHOL [Concomitant]
     Indication: BLOOD CHOLESTEROL INCREASED
     Dosage: 1250 MG
     Route: 048
     Dates: start: 20000101
  4. CHOLESTYRAMINE [Concomitant]
     Indication: BLOOD CHOLESTEROL INCREASED
     Route: 048
     Dates: start: 20000101
  5. LEVOTHYROXINE SODIUM [Concomitant]
     Indication: HYPOTHYROIDISM
     Dosage: 0.5 MCG
     Route: 048
  6. ROPINIROLE [Concomitant]
     Indication: RESTLESS LEGS SYNDROME
     Route: 048
  7. POTASSIUM CHLORIDE [Concomitant]
     Indication: ELECTROLYTE SUBSTITUTION THERAPY
     Route: 048
     Dates: start: 20060101
  8. FUROSEMIDE [Concomitant]
     Indication: OEDEMA PERIPHERAL
     Route: 048
     Dates: start: 20060101
  9. RANITIDINE [Concomitant]
     Indication: GASTROOESOPHAGEAL REFLUX DISEASE
     Route: 048
     Dates: start: 20090101
  10. PRADAXA [Suspect]
     Indication: CARDIAC ASSISTANCE DEVICE USER
     Dosage: 300 MG
     Route: 048
  11. OXYBUTYNIN [Concomitant]
     Indication: URINARY INCONTINENCE
     Dosage: 10 MG
     Route: 048
  12. BUPROPION HCL [Concomitant]
     Dosage: 200 MG
     Route: 048

REACTIONS (1)
  - OEDEMA PERIPHERAL [None]
